FAERS Safety Report 11065776 (Version 3)
Quarter: 2015Q2

REPORT INFORMATION
  Report Type: Spontaneous
  Country: US (occurrence: None)
  Receive Date: 20150423
  Receipt Date: 20150513
  Transmission Date: 20150821
  Serious: Yes (Other)
  Sender: FDA-Public Use
  Company Number: US-H14001-15-00567

PATIENT
  Age: 22 Year
  Sex: Female

DRUGS (3)
  1. AMIODARONE (AMIODARONE) (UNKNOWN) (AMIODARONE) [Suspect]
     Active Substance: AMIODARONE
     Indication: CARDIAC ARREST
     Route: 040
  2. AMIODARONE (AMIODARONE) (UNKNOWN) (AMIODARONE) [Suspect]
     Active Substance: AMIODARONE
     Indication: VENTRICULAR TACHYCARDIA
     Route: 040
  3. AMIODARONE (AMIODARONE) (UNKNOWN) (AMIODARONE) [Suspect]
     Active Substance: AMIODARONE
     Indication: VENTRICULAR FIBRILLATION
     Route: 040

REACTIONS (8)
  - Neurological decompensation [None]
  - Electrocardiogram QT prolonged [None]
  - Ventricular tachycardia [None]
  - Ventricular arrhythmia [None]
  - Torsade de pointes [None]
  - Cardiac arrest [None]
  - Ejection fraction decreased [None]
  - Electrocardiogram T wave abnormal [None]
